FAERS Safety Report 23932454 (Version 1)
Quarter: 2024Q2

REPORT INFORMATION
  Report Type: Spontaneous
  Country: TR (occurrence: TR)
  Receive Date: 20240603
  Receipt Date: 20240603
  Transmission Date: 20240715
  Serious: Yes (Hospitalization, Other)
  Sender: FDA-Public Use
  Company Number: TR-AMGEN-TURSP2024105717

PATIENT
  Age: 75 Year
  Sex: Female
  Weight: 55 kg

DRUGS (3)
  1. PROLIA [Suspect]
     Active Substance: DENOSUMAB
     Indication: Osteoporosis
     Dosage: 60 MILLIGRAM INJECTION, Q6MO
     Route: 065
     Dates: start: 2023, end: 2024
  2. CALCIDAY D3 [Concomitant]
     Indication: Osteoporosis
     Dosage: 1200MG/8001U, QD
     Route: 065
     Dates: start: 2018
  3. EUTHYROX [Concomitant]
     Active Substance: LEVOTHYROXINE SODIUM
     Indication: Thyroid disorder
     Dosage: 100 MICROGRAM, QD
     Route: 065
     Dates: start: 2017

REACTIONS (2)
  - Diverticulitis intestinal perforated [Recovering/Resolving]
  - Pollakiuria [Unknown]
